FAERS Safety Report 13188249 (Version 2)
Quarter: 2017Q1

REPORT INFORMATION
  Report Type: Report from Study
  Country: CA (occurrence: CA)
  Receive Date: 20170206
  Receipt Date: 20170217
  Transmission Date: 20170428
  Serious: Yes (Hospitalization)
  Sender: FDA-Public Use
  Company Number: CA-IPSEN BIOPHARMACEUTICALS, INC.-2017-00849

PATIENT
  Age: 79 Year
  Sex: Male
  Weight: 65 kg

DRUGS (11)
  1. NORVASC [Concomitant]
     Active Substance: AMLODIPINE BESYLATE
     Route: 048
  2. SOMATULINE AUTOGEL 120MG [Suspect]
     Active Substance: LANREOTIDE ACETATE
     Indication: NEUROENDOCRINE TUMOUR
     Dosage: 120 MG
     Route: 058
     Dates: start: 20161102, end: 20170123
  3. NORVASC [Concomitant]
     Active Substance: AMLODIPINE BESYLATE
     Route: 048
  4. VITAMIN B12 [Concomitant]
     Active Substance: CYANOCOBALAMIN
     Route: 060
  5. VITAMIN D [Concomitant]
     Active Substance: CHOLECALCIFEROL
  6. PANTOLOC [Concomitant]
     Active Substance: PANTOPRAZOLE SODIUM
  7. SIMETHICONE (DIMETHICONE) [Concomitant]
     Active Substance: DIMETHICONE
  8. LISINOPRIL. [Concomitant]
     Active Substance: LISINOPRIL
     Route: 048
  9. MAGNESIUM OXIDE. [Concomitant]
     Active Substance: MAGNESIUM OXIDE
  10. MELOXICAM. [Concomitant]
     Active Substance: MELOXICAM
  11. LISINOPRIL. [Concomitant]
     Active Substance: LISINOPRIL
     Route: 048

REACTIONS (3)
  - Small intestinal obstruction [Recovering/Resolving]
  - Acute kidney injury [Unknown]
  - Drug ineffective [Unknown]

NARRATIVE: CASE EVENT DATE: 20170110
